FAERS Safety Report 18661107 (Version 1)
Quarter: 2020Q4

REPORT INFORMATION
  Report Type: Spontaneous
  Country: US (occurrence: US)
  Receive Date: 20201224
  Receipt Date: 20201224
  Transmission Date: 20210114
  Serious: No
  Sender: FDA-Public Use
  Company Number: None

PATIENT
  Age: 37 Year
  Sex: Female
  Weight: 113 kg

DRUGS (1)
  1. CASIRIVIMAB\IMDEVIMAB [Suspect]
     Active Substance: CASIRIVIMAB\IMDEVIMAB
     Indication: COVID-19
     Dates: start: 20201215, end: 20201215

REACTIONS (4)
  - Dizziness [None]
  - Infusion related reaction [None]
  - Blood pressure systolic increased [None]
  - Paraesthesia [None]

NARRATIVE: CASE EVENT DATE: 20201215
